FAERS Safety Report 16564967 (Version 1)
Quarter: 2019Q3

REPORT INFORMATION
  Report Type: Spontaneous
  Country: DE (occurrence: DE)
  Receive Date: 20190712
  Receipt Date: 20190712
  Transmission Date: 20191004
  Serious: Yes (Hospitalization)
  Sender: FDA-Public Use
  Company Number: DE-ACCORD-138326

PATIENT
  Age: 68 Year
  Sex: Female

DRUGS (16)
  1. ENOXAPARIN [Concomitant]
     Active Substance: ENOXAPARIN
     Dosage: 0.7 ML, 1-0-1-0
  2. LEVOTHYROXIN-NATRIUM [Concomitant]
     Active Substance: LEVOTHYROXINE SODIUM
     Dosage: 50 MICROG, 0.5-0-0-0
  3. DIMETINDENE/DIMETINDENE MALEATE [Concomitant]
     Dosage: 4 MG, 1-0-0-0
  4. GEMCITABINE/GEMCITABINE HYDROCHLORIDE [Suspect]
     Active Substance: GEMCITABINE\GEMCITABINE HYDROCHLORIDE
     Indication: PRODUCT USED FOR UNKNOWN INDICATION
     Dosage: NK MG, MOST RECENTLY ON 16.01.2018
  5. ONDANSETRON [Concomitant]
     Active Substance: ONDANSETRON
     Dosage: 8 MG, NEED, MAX. 2X / D
     Route: 060
  6. COLECALCIFEROL [Concomitant]
     Active Substance: CHOLECALCIFEROL
     Dosage: 1000 IE, 1-0-0-0
  7. METAMIZOLE SODIUM [Concomitant]
     Active Substance: METAMIZOLE SODIUM
     Dosage: NK MG, 40-40-40-40, DROPS
  8. MACROGOL 3350/SODIUM CHLORIDE/SODIUM HYDROGEN CARBONATE/POTASSIUM CHLORIDE [Concomitant]
     Dosage: NK MG, AS REQUIRED
  9. INSULIN [Concomitant]
     Active Substance: INSULIN NOS
     Dosage: NK IE, ACCORDING TO BZ
  10. PANTOPRAZOLE [Concomitant]
     Active Substance: PANTOPRAZOLE
     Dosage: 40 MG, 1-0-0-0
  11. ATENOLOL/ATENOLOL HYDROCHLORIDE [Concomitant]
     Dosage: 50 MG, 1-0-1-0
  12. METOCLOPRAMIDE. [Concomitant]
     Active Substance: METOCLOPRAMIDE
     Dosage: 10 MG, NEED, MAX 4 X / D
  13. OXYCODONE/OXYCODONE HYDROCHLORIDE/OXYCODONE PECTINATE/OXYCODONE TEREPHTHALATE [Concomitant]
     Dosage: 10 MG, 1-0-1-0
  14. CALCIUM CARBONATE/CALCIUM LACTOGLUCONATE [Concomitant]
     Dosage: 500 MG, 1-0-0-0, EFFERVESCENT TABLETS
  15. METOPROLOL. [Concomitant]
     Active Substance: METOPROLOL
     Dosage: 10 MG, 1-1-1-0
  16. TORASEMIDE [Concomitant]
     Active Substance: TORSEMIDE
     Dosage: 20 MG, 1-0-0-0?10 MG, 1-0-0-0

REACTIONS (7)
  - Asthenia [Unknown]
  - Abdominal pain [Unknown]
  - Decreased appetite [Unknown]
  - General physical health deterioration [Unknown]
  - Blood count abnormal [Unknown]
  - Liver function test abnormal [Unknown]
  - Nausea [Unknown]
